FAERS Safety Report 8431664 (Version 10)
Quarter: 2013Q2

REPORT INFORMATION
  Report Type: Spontaneous
  Country: US (occurrence: US)
  Receive Date: 20120228
  Receipt Date: 20130523
  Transmission Date: 20140414
  Serious: Yes (Hospitalization, Other)
  Sender: FDA-Public Use
  Company Number: US-009507513-1202USA03894

PATIENT
  Sex: Female
  Weight: 62.6 kg

DRUGS (10)
  1. FOSAMAX [Suspect]
     Indication: OSTEOPOROSIS
     Dosage: UNK
     Route: 048
     Dates: start: 1995
  2. FOSAMAX [Suspect]
     Dosage: 70 MG, UNK
     Route: 048
     Dates: start: 20011002, end: 200803
  3. FOSAMAX [Suspect]
     Dosage: 10 MG, UNK
     Route: 048
     Dates: start: 19990206, end: 20010706
  4. FOSAMAX D [Suspect]
     Indication: OSTEOPOROSIS
     Dosage: UNK
     Route: 048
     Dates: start: 2000, end: 2010
  5. FOSAMAX [Suspect]
     Indication: OSTEOPOROSIS
     Dosage: 70 MG, UNK
     Route: 048
     Dates: start: 200812
  6. ALENDRONATE SODIUM [Suspect]
     Indication: OSTEOPOROSIS
     Dosage: 70 MG, UNK
     Route: 048
     Dates: start: 200803, end: 2008
  7. ALENDRONATE SODIUM [Suspect]
     Indication: OSTEOPOROSIS
     Dosage: 70 MG, UNK
     Dates: start: 20090209, end: 201003
  8. TAMOXIFEN CITRATE [Concomitant]
     Indication: BREAST CANCER
     Dosage: TOOK AFTER MASTECTOMY
     Dates: start: 1988, end: 1995
  9. NICODERM [Concomitant]
  10. PROZAC [Concomitant]
     Indication: DEPRESSION
     Dosage: 20 MG, QD
     Dates: start: 198712

REACTIONS (67)
  - Femur fracture [Unknown]
  - Femur fracture [Unknown]
  - Open reduction of fracture [Unknown]
  - Open reduction of fracture [Unknown]
  - Surgery [Unknown]
  - Bladder repair [Unknown]
  - Acute respiratory distress syndrome [Recovering/Resolving]
  - Musculoskeletal disorder [Unknown]
  - Colectomy [Unknown]
  - Stress fracture [Unknown]
  - Excoriation [Unknown]
  - Pneumonia aspiration [Recovering/Resolving]
  - Critical illness myopathy [Recovering/Resolving]
  - Chest pain [Unknown]
  - Urogenital fistula [Unknown]
  - Enterovesical fistula [Unknown]
  - Haemorrhagic anaemia [Recovering/Resolving]
  - Femur fracture [Unknown]
  - Femur fracture [Unknown]
  - Depression [Not Recovered/Not Resolved]
  - Anxiety [Not Recovered/Not Resolved]
  - Insomnia [Unknown]
  - Pain [Not Recovered/Not Resolved]
  - Osteoarthritis [Unknown]
  - Large intestine polyp [Unknown]
  - Low turnover osteopathy [Unknown]
  - Breast disorder [Unknown]
  - Emphysema [Unknown]
  - Nasal septum deviation [Unknown]
  - Chronic obstructive pulmonary disease [Not Recovered/Not Resolved]
  - White blood cell count increased [Not Recovered/Not Resolved]
  - Nocturia [Unknown]
  - Bronchitis [Unknown]
  - Bunion [Unknown]
  - Fall [Unknown]
  - Foot deformity [Unknown]
  - Joint injury [Unknown]
  - Lung disorder [Unknown]
  - Incision site erythema [Recovering/Resolving]
  - Rheumatoid arthritis [Unknown]
  - Medical device discomfort [Recovered/Resolved]
  - Vitamin D deficiency [Unknown]
  - Osteoarthritis [Unknown]
  - Weight decreased [Unknown]
  - Tremor [Unknown]
  - Spinal osteoarthritis [Unknown]
  - Urinary tract infection [Unknown]
  - Fall [Unknown]
  - Major depression [Unknown]
  - Generalised anxiety disorder [Unknown]
  - Abscess [Unknown]
  - Anaemia [Unknown]
  - Vitamin D deficiency [Unknown]
  - Osteoarthritis [Unknown]
  - Carpal tunnel syndrome [Unknown]
  - Keloid scar [Unknown]
  - Foot deformity [Unknown]
  - Bunion [Unknown]
  - Abdominal discomfort [Recovered/Resolved]
  - Dyspnoea [Unknown]
  - Pain in extremity [Unknown]
  - Headache [Unknown]
  - Arthralgia [Unknown]
  - Arthralgia [Unknown]
  - Myalgia [Unknown]
  - Gastrooesophageal reflux disease [Unknown]
  - Therapeutic response decreased [Unknown]
